FAERS Safety Report 4413033-6 (Version None)
Quarter: 2004Q3

REPORT INFORMATION
  Report Type: 
  Country: None (occurrence: None)
  Receive Date: 20040727
  Receipt Date: 20040714
  Transmission Date: 20050211
  Serious: Yes (Other)
  Sender: FDA-Public Use
  Company Number: 2004047814

PATIENT
  Age: 69 Year
  Sex: Female
  Weight: 90.7194 kg

DRUGS (11)
  1. RELPAX [Suspect]
     Indication: MIGRAINE
     Dosage: 40 MG (40 MG), ORAL
     Route: 048
     Dates: start: 20040101
  2. PROGESTERONE [Concomitant]
  3. ALL OTHER THERAPEUTIC PRODUCTS (ALL OTHER THERAPEUTIC PRODUCTS) [Concomitant]
  4. PAROXETINE HCL [Concomitant]
  5. THYROID TAB [Concomitant]
  6. PRASTERONE (PRASTERONE) [Concomitant]
  7. TESTOSTERONE [Concomitant]
  8. AMITRIPTYLINE HCL [Concomitant]
  9. PRAVASTATIN SODIUM [Concomitant]
  10. ACETYLSALICYLIC ACID SRT [Concomitant]
  11. VERAPAMIL [Concomitant]

REACTIONS (5)
  - CARDIAC DISORDER [None]
  - DIZZINESS [None]
  - DRUG EFFECT DECREASED [None]
  - DYSPNOEA [None]
  - FATIGUE [None]
